FAERS Safety Report 5624385-3 (Version None)
Quarter: 2008Q1

REPORT INFORMATION
  Report Type: 
  Country: None (occurrence: None)
  Receive Date: 20080213
  Receipt Date: 20080131
  Transmission Date: 20080703
  Serious: Yes (Death)
  Sender: FDA-Public Use
  Company Number: IT-ELI_LILLY_AND_COMPANY-IT200802000141

PATIENT
  Age: 16 Year
  Sex: Male

DRUGS (1)
  1. XIGRIS [Suspect]
     Indication: SEPSIS
     Dosage: 20 MG, TOTALLY
     Route: 042
     Dates: start: 20030822, end: 20030822

REACTIONS (1)
  - PULMONARY HAEMORRHAGE [None]
